FAERS Safety Report 8325663-X (Version None)
Quarter: 2012Q2

REPORT INFORMATION
  Report Type: 
  Country: None (occurrence: None)
  Receive Date: 20120427
  Receipt Date: 20120416
  Transmission Date: 20120825
  Serious: Yes (Hospitalization)
  Sender: FDA-Public Use
  Company Number: 12-306

PATIENT
  Age: 81 Year
  Sex: Male

DRUGS (4)
  1. EZETIMIBE [Concomitant]
  2. TRIMETHOPRIM [Concomitant]
  3. IBUPROFEN [Suspect]
     Indication: BACK PAIN
     Dosage: ORAL
     Route: 048
     Dates: start: 20120101, end: 20120401
  4. FECAINIDE [Concomitant]

REACTIONS (1)
  - DUODENAL ULCER HAEMORRHAGE [None]
